FAERS Safety Report 10088938 (Version 1)
Quarter: 2014Q2

REPORT INFORMATION
  Report Type: Spontaneous
  Country: FI (occurrence: FI)
  Receive Date: 20140421
  Receipt Date: 20140421
  Transmission Date: 20141212
  Serious: Yes (Hospitalization)
  Sender: FDA-Public Use
  Company Number: PHHY2014FI047366

PATIENT
  Age: 55 Year
  Sex: Female

DRUGS (4)
  1. ZOMETA [Suspect]
     Indication: METASTASES TO BONE
     Dosage: UNK UKN, UNK
  2. CYCLOPHOSPHAMIDE [Concomitant]
     Dosage: UNK UKN, UNK
  3. EPIRUBICIN [Concomitant]
     Dates: start: 20140402
  4. FLUOROURACIL [Concomitant]

REACTIONS (5)
  - Osteonecrosis of jaw [Unknown]
  - Fistula [Unknown]
  - Exostosis [Unknown]
  - Infection [Unknown]
  - Pain [Unknown]
